FAERS Safety Report 8052074-7 (Version None)
Quarter: 2012Q1

REPORT INFORMATION
  Report Type: 
  Country: None (occurrence: None)
  Receive Date: 20120118
  Receipt Date: 20120113
  Transmission Date: 20120608
  Serious: No
  Sender: FDA-Public Use
  Company Number: US-PFIZER INC-2012010915

PATIENT
  Sex: Male

DRUGS (3)
  1. NIFEDIPINE [Suspect]
     Dosage: UNK
  2. CLONIDINE [Suspect]
     Dosage: UNK
  3. ISORDIL [Suspect]
     Dosage: UNK

REACTIONS (1)
  - DRUG INEFFECTIVE [None]
